FAERS Safety Report 7737225-3 (Version None)
Quarter: 2011Q3

REPORT INFORMATION
  Report Type: 
  Country: None (occurrence: None)
  Receive Date: 20110908
  Receipt Date: 20110905
  Transmission Date: 20111222
  Serious: Yes (Death, Hospitalization, Other)
  Sender: FDA-Public Use
  Company Number: JP-ABBOTT-11P-087-0835102-00

PATIENT
  Sex: Male
  Weight: 45.1 kg

DRUGS (23)
  1. REBAMIPIDE [Concomitant]
     Indication: GASTRITIS
     Route: 048
     Dates: end: 20110605
  2. BECLOMETHASONE DIPROPIONATE [Concomitant]
     Indication: PSORIASIS
     Route: 061
     Dates: start: 20101207, end: 20110426
  3. MOMETASONE FUROATE [Concomitant]
     Indication: PSORIASIS
     Route: 061
     Dates: start: 20101207, end: 20110426
  4. URAPIDIL [Concomitant]
     Indication: NEUROGENIC BLADDER
     Route: 048
     Dates: end: 20110605
  5. ETRETINATE [Concomitant]
     Indication: PSORIASIS
     Route: 048
     Dates: start: 20101012, end: 20110426
  6. EPINASTINE HYDROCHLORIDE [Concomitant]
     Indication: PSORIASIS
     Route: 048
     Dates: start: 20110426, end: 20110705
  7. TIOTROPIUM BROMIDE HYDRATE [Concomitant]
     Indication: CHRONIC OBSTRUCTIVE PULMONARY DISEASE
     Route: 055
     Dates: start: 20110222
  8. NICERGOLINE [Concomitant]
     Indication: PRODUCT USED FOR UNKNOWN INDICATION
     Route: 048
     Dates: end: 20110605
  9. CALCIPOTRIOL [Concomitant]
     Indication: PSORIASIS
     Route: 061
     Dates: start: 20100901, end: 20100914
  10. CLOBETASONE BUTYRATE [Concomitant]
     Indication: PSORIASIS
     Route: 061
     Dates: start: 20101012, end: 20101207
  11. HUMIRA [Suspect]
     Dates: start: 20100309, end: 20100622
  12. CLOPIDOGREL SULFATE [Concomitant]
     Indication: PRODUCT USED FOR UNKNOWN INDICATION
     Route: 048
     Dates: end: 20110605
  13. MAXACALCITOL [Concomitant]
     Indication: PSORIASIS
     Route: 061
     Dates: start: 20101012, end: 20110401
  14. OLOPATADINE HYDROCHLORIDE [Concomitant]
     Dates: end: 20110605
  15. HUMIRA [Suspect]
     Indication: PSORIASIS
     Route: 058
     Dates: start: 20100223, end: 20100223
  16. OLOPATADINE HYDROCHLORIDE [Concomitant]
     Dates: start: 20100901, end: 20100926
  17. BETAMETHASONE BUTYRATE PROPIONATE [Concomitant]
     Indication: PSORIASIS
     Route: 061
     Dates: start: 20091110, end: 20100622
  18. BETAMETHASONE BUTYRATE PROPIONATE [Concomitant]
     Dates: start: 20100901, end: 20110426
  19. MAGNESIUM OXIDE [Concomitant]
     Indication: CONSTIPATION
     Route: 048
     Dates: end: 20110605
  20. OLOPATADINE HYDROCHLORIDE [Concomitant]
     Indication: PSORIASIS
     Route: 048
     Dates: start: 20091222, end: 20100622
  21. INFLIXIMAB [Concomitant]
     Indication: PSORIASIS
     Route: 058
     Dates: start: 20100713, end: 20100727
  22. ZONISAMIDE [Concomitant]
     Indication: PRODUCT USED FOR UNKNOWN INDICATION
     Route: 048
     Dates: end: 20110605
  23. BETAMETHASONE ALERATE/GENTAMICIN SULFATE [Concomitant]
     Indication: PSORIASIS
     Route: 061
     Dates: start: 20101012, end: 20101207

REACTIONS (8)
  - PLEURAL EFFUSION [None]
  - PYREXIA [None]
  - LUNG ADENOCARCINOMA [None]
  - GENERAL PHYSICAL HEALTH DETERIORATION [None]
  - COUGH [None]
  - MALAISE [None]
  - MALIGNANT PLEURAL EFFUSION [None]
  - MYCOBACTERIUM TUBERCULOSIS COMPLEX TEST POSITIVE [None]
